FAERS Safety Report 5364855-9 (Version None)
Quarter: 2007Q2

REPORT INFORMATION
  Report Type: 
  Country: None (occurrence: None)
  Receive Date: 20070530
  Receipt Date: 20070110
  Transmission Date: 20071010
  Serious: No
  Sender: FDA-Public Use
  Company Number: 2007PV028199

PATIENT
  Age: 66 Year
  Sex: Female
  Weight: 89.3586 kg

DRUGS (4)
  1. BYETTA [Suspect]
     Indication: DIABETES MELLITUS NON-INSULIN-DEPENDENT
     Dosage: 5 MCG;BID;SC
     Route: 058
     Dates: start: 20061201, end: 20061201
  2. METFORMIN HCL [Concomitant]
  3. NOVOLOG MIX 70/30 [Concomitant]
  4. NOVOLOG [Concomitant]

REACTIONS (3)
  - ABDOMINAL DISTENSION [None]
  - BLOOD GLUCOSE INCREASED [None]
  - DYSPEPSIA [None]
